FAERS Safety Report 23364304 (Version 1)
Quarter: 2024Q1

REPORT INFORMATION
  Report Type: Other
  Country: IN (occurrence: IN)
  Receive Date: 20240104
  Receipt Date: 20240104
  Transmission Date: 20240410
  Serious: Yes (Hospitalization)
  Sender: FDA-Public Use
  Company Number: IN-ALVOGEN-2023092812

PATIENT
  Age: 42 Year
  Sex: Male

DRUGS (1)
  1. DISULFIRAM [Suspect]
     Active Substance: DISULFIRAM
     Indication: Alcoholism
     Dosage: STRENGTH: 250 MG ONCE/DAY?TOOK ONLY 2 DOSES OF DISULFIRAM WITH CUMULATIVE DOSE OF 500 MG

REACTIONS (2)
  - Symmetrical drug-related intertriginous and flexural exanthema [Recovering/Resolving]
  - Labelled drug-food interaction issue [Unknown]
